FAERS Safety Report 8377757-0 (Version None)
Quarter: 2012Q2

REPORT INFORMATION
  Report Type: 
  Country: None (occurrence: None)
  Receive Date: 20120522
  Receipt Date: 20120517
  Transmission Date: 20120825
  Serious: Yes (Death)
  Sender: FDA-Public Use
  Company Number: CN-GLAXOSMITHKLINE-R0018325A

PATIENT
  Sex: Male

DRUGS (4)
  1. AZITHROMYCIN [Suspect]
     Indication: MENINGITIS
     Dosage: .1G PER DAY
     Route: 042
     Dates: start: 20110711, end: 20110711
  2. CEFUROXIME [Suspect]
     Indication: MENINGITIS
     Dosage: .8G PER DAY
     Route: 042
     Dates: start: 20110711, end: 20110711
  3. BLINDED VACCINE [Suspect]
     Indication: PROPHYLAXIS
     Route: 048
     Dates: start: 20101203, end: 20101203
  4. RIBAVIRIN [Suspect]
     Indication: MENINGITIS
     Dosage: .1G PER DAY
     Route: 042
     Dates: start: 20110711, end: 20110711

REACTIONS (2)
  - MULTI-ORGAN FAILURE [None]
  - MENINGITIS [None]
